FAERS Safety Report 14108064 (Version 1)
Quarter: 2017Q4

REPORT INFORMATION
  Report Type: Spontaneous
  Country: GB (occurrence: GB)
  Receive Date: 20171019
  Receipt Date: 20171019
  Transmission Date: 20180321
  Serious: Yes (Other)
  Sender: FDA-Public Use
  Company Number: GB-TEVA-815724ACC

PATIENT
  Age: 62 Year
  Sex: Female

DRUGS (13)
  1. PREDNISOLONE. [Suspect]
     Active Substance: PREDNISOLONE
     Indication: POLYMYALGIA RHEUMATICA
     Dosage: 80 MG REDUCING DOWN TO 11 MG AT PRESENT.
     Route: 048
     Dates: start: 2009
  2. ABSTRAL [Concomitant]
     Active Substance: FENTANYL CITRATE
     Route: 060
  3. PREDNISOLONE. [Suspect]
     Active Substance: PREDNISOLONE
     Indication: POLYMYALGIA RHEUMATICA
     Dosage: 80 MG REDUCING DOWN TO 11 MG AT PRESENT.
     Route: 048
  4. ADCAL-D3 [Concomitant]
     Active Substance: CALCIUM CARBONATE\CHOLECALCIFEROL
  5. LANSOPRAZOLE. [Concomitant]
     Active Substance: LANSOPRAZOLE
  6. NORTRIPTYLIN [Concomitant]
     Active Substance: NORTRIPTYLINE
  7. ATORVASTATIN [Concomitant]
     Active Substance: ATORVASTATIN
  8. LISINOPRIL. [Concomitant]
     Active Substance: LISINOPRIL
  9. WARFARIN [Concomitant]
     Active Substance: WARFARIN
  10. DIHYDROCODEINE [Concomitant]
     Active Substance: DIHYDROCODEINE
  11. LYRICA [Concomitant]
     Active Substance: PREGABALIN
  12. SLOZEM [Concomitant]
     Active Substance: DILTIAZEM
  13. PARACETAMOL [Concomitant]
     Active Substance: ACETAMINOPHEN

REACTIONS (1)
  - Deafness bilateral [Not Recovered/Not Resolved]
